FAERS Safety Report 9897556 (Version 1)
Quarter: 2014Q1

REPORT INFORMATION
  Report Type: Spontaneous
  Country: CA (occurrence: CA)
  Receive Date: 20140214
  Receipt Date: 20140214
  Transmission Date: 20141002
  Serious: Yes (Death, Hospitalization)
  Sender: FDA-Public Use
  Company Number: CA-JNJFOC-20140207261

PATIENT
  Age: 47 Year
  Sex: Female

DRUGS (6)
  1. INFLIXIMAB, RECOMBINANT [Suspect]
     Indication: SARCOIDOSIS
     Route: 042
  2. METHOTREXATE [Suspect]
     Indication: SARCOIDOSIS
     Route: 065
  3. IMMUNOGLOBULINS NOS [Concomitant]
     Indication: SARCOIDOSIS
     Route: 042
  4. PREDNISONE [Concomitant]
     Indication: SARCOIDOSIS
     Route: 065
  5. CYCLOSPORINE [Concomitant]
     Indication: SARCOIDOSIS
     Route: 065
  6. DAPSONE [Concomitant]
     Indication: SARCOIDOSIS
     Route: 065

REACTIONS (4)
  - Injury [Fatal]
  - Acute respiratory failure [Fatal]
  - Aspiration [Fatal]
  - Off label use [Unknown]
